FAERS Safety Report 4854548-6 (Version None)
Quarter: 2005Q4

REPORT INFORMATION
  Report Type: 
  Country: None (occurrence: None)
  Receive Date: 20051215
  Receipt Date: 20051205
  Transmission Date: 20060501
  Serious: Yes (Hospitalization)
  Sender: FDA-Public Use
  Company Number: FR-ROCHE-427555

PATIENT
  Age: 65 Year
  Sex: Female
  Weight: 88 kg

DRUGS (6)
  1. DACLIZUMAB [Suspect]
     Route: 042
     Dates: start: 20050817, end: 20050817
  2. DACLIZUMAB [Suspect]
     Route: 042
     Dates: start: 20050830, end: 20050830
  3. MYCOPHENOLATE MOFETIL [Suspect]
     Route: 048
     Dates: start: 20050817, end: 20051013
  4. MYCOPHENOLATE MOFETIL [Suspect]
     Route: 048
     Dates: start: 20051014
  5. CORTICOSTEROID NOS [Suspect]
     Route: 048
     Dates: start: 20050817
  6. CYCLOSPORINE [Suspect]
     Route: 048
     Dates: start: 20050819

REACTIONS (1)
  - CYTOMEGALOVIRUS INFECTION [None]
